FAERS Safety Report 20032933 (Version 1)
Quarter: 2021Q4

REPORT INFORMATION
  Report Type: Spontaneous
  Country: US (occurrence: US)
  Receive Date: 20211104
  Receipt Date: 20211104
  Transmission Date: 20220303
  Serious: Yes (Other)
  Sender: FDA-Public Use
  Company Number: US-NOVOPROD-861854

PATIENT
  Sex: Female

DRUGS (2)
  1. LEVEMIR [Suspect]
     Active Substance: INSULIN DETEMIR
     Indication: Product used for unknown indication
     Dosage: UNKNOWN DOSE, BID
     Route: 058
     Dates: start: 2021
  2. HUMALOG [Suspect]
     Active Substance: INSULIN LISPRO
     Indication: Product used for unknown indication
     Dosage: 12 IU QD
     Route: 065
     Dates: start: 2009

REACTIONS (2)
  - Visual impairment [Not Recovered/Not Resolved]
  - Blood glucose increased [Unknown]
